FAERS Safety Report 22122582 (Version 2)
Quarter: 2023Q2

REPORT INFORMATION
  Report Type: Report from Study
  Country: BR (occurrence: BR)
  Receive Date: 20230321
  Receipt Date: 20230411
  Transmission Date: 20230721
  Serious: No
  Sender: FDA-Public Use
  Company Number: BR-GILEAD-2023-0620496

PATIENT

DRUGS (2)
  1. SOFOSBUVIR [Suspect]
     Active Substance: SOFOSBUVIR
     Indication: Product used for unknown indication
     Dosage: UNK
     Route: 065
  2. DACLATASVIR [Concomitant]
     Active Substance: DACLATASVIR
     Dosage: UNK

REACTIONS (1)
  - Abdominal pain [Unknown]
